FAERS Safety Report 17225361 (Version 1)
Quarter: 2020Q1

REPORT INFORMATION
  Report Type: Spontaneous
  Country: CA (occurrence: CA)
  Receive Date: 20200102
  Receipt Date: 20200102
  Transmission Date: 20200409
  Serious: Yes (Life-Threatening)
  Sender: FDA-Public Use
  Company Number: CA-TEVA-2019-CA-1161898

PATIENT
  Age: 43 Year
  Sex: Male
  Weight: 68 kg

DRUGS (3)
  1. TYLENOL #3(ACETAMINOPHEN/CODEINE) [Concomitant]
  2. ROBAXACET [Concomitant]
     Active Substance: ACETAMINOPHEN\METHOCARBAMOL
  3. GABAPENTIN. [Suspect]
     Active Substance: GABAPENTIN
     Indication: PAIN
     Dosage: 3600 MILLIGRAM DAILY;
     Route: 048

REACTIONS (10)
  - Memory impairment [Recovered/Resolved]
  - Cognitive disorder [Recovered/Resolved]
  - Feeling abnormal [Recovered/Resolved]
  - Impulsive behaviour [Recovered/Resolved]
  - Loss of consciousness [Recovered/Resolved]
  - Suicidal behaviour [Recovered/Resolved]
  - Withdrawal syndrome [Recovered/Resolved]
  - Mental impairment [Recovered/Resolved]
  - Depressed level of consciousness [Recovered/Resolved]
  - Stupor [Recovered/Resolved]
